FAERS Safety Report 19641535 (Version 1)
Quarter: 2021Q3

REPORT INFORMATION
  Report Type: Spontaneous
  Country: GB (occurrence: GB)
  Receive Date: 20210731
  Receipt Date: 20210731
  Transmission Date: 20211014
  Serious: Yes (Hospitalization)
  Sender: FDA-Public Use
  Company Number: GB-AUROBINDO-AUR-APL-2021-032238

PATIENT
  Age: 81 Year
  Sex: Female

DRUGS (1)
  1. METFORMIN [Suspect]
     Active Substance: METFORMIN HYDROCHLORIDE
     Indication: ILL-DEFINED DISORDER
     Dosage: 2 DOSAGE FORM, TWO TIMES A DAY
     Route: 048

REACTIONS (2)
  - Medication error [Unknown]
  - Malaise [Recovering/Resolving]
